FAERS Safety Report 18723805 (Version 1)
Quarter: 2021Q1

REPORT INFORMATION
  Report Type: Report from Study
  Country: US (occurrence: US)
  Receive Date: 20210111
  Receipt Date: 20210111
  Transmission Date: 20210419
  Serious: Yes (Other)
  Sender: FDA-Public Use
  Company Number: US-PFIZER INC-2021011030

PATIENT

DRUGS (2)
  1. METHOTREXATE SODIUM. [Suspect]
     Active Substance: METHOTREXATE SODIUM
     Indication: ACUTE LYMPHOCYTIC LEUKAEMIA
     Dosage: 4G/M^2 FOR LESS THAN 1 YEAR, 5G/M^2 FOR GRATER THAN EQUAL TO 1 YEAR
  2. LEUCOVORIN AMAXA [Concomitant]

REACTIONS (1)
  - Nephropathy toxic [Unknown]
